FAERS Safety Report 6127662-5 (Version None)
Quarter: 2009Q1

REPORT INFORMATION
  Report Type: 
  Country: None (occurrence: None)
  Receive Date: 20090319
  Receipt Date: 20090319
  Transmission Date: 20090719
  Serious: No
  Sender: FDA-Public Use
  Company Number: None

PATIENT
  Age: 64 Year
  Sex: Female
  Weight: 87.9978 kg

DRUGS (1)
  1. CEFUROXIME SODIUM [Suspect]
     Indication: SINUSITIS
     Dosage: 2 TABLETS TWICE PER DAY PO
     Route: 048
     Dates: start: 20090313, end: 20090317

REACTIONS (3)
  - ABDOMINAL PAIN [None]
  - COLD SWEAT [None]
  - DIARRHOEA [None]
